FAERS Safety Report 8788296 (Version 1)
Quarter: 2012Q4

REPORT INFORMATION
  Report Type: Report from Study
  Country: US (occurrence: US)
  Receive Date: 20120914
  Receipt Date: 20120914
  Transmission Date: 20130627
  Serious: No
  Sender: FDA-Public Use
  Company Number: US-VERTEX PHARMACEUTICAL INC.-AE-2012-011688

PATIENT
  Sex: Male

DRUGS (6)
  1. INCIVEK [Suspect]
     Indication: HEPATITIS C
     Route: 048
     Dates: start: 20120720
  2. RIBASPHERE [Concomitant]
     Indication: HEPATITIS C
     Dates: start: 20120720
  3. PEGASYS [Concomitant]
     Indication: HEPATITIS C
     Dates: start: 20120720
  4. TOPAMAX [Concomitant]
     Indication: PAIN
  5. FENTANYL PATCH [Concomitant]
     Indication: PAIN
  6. ALPRAZOLAM [Concomitant]
     Indication: ANXIETY

REACTIONS (2)
  - Pruritus [Recovered/Resolved]
  - Anal pruritus [Recovered/Resolved]
